FAERS Safety Report 19457185 (Version 1)
Quarter: 2021Q2

REPORT INFORMATION
  Report Type: Spontaneous
  Country: AU (occurrence: AU)
  Receive Date: 20210624
  Receipt Date: 20210624
  Transmission Date: 20210717
  Serious: Yes (Other)
  Sender: FDA-Public Use
  Company Number: AU-TAKEDA-2021TUS039485

PATIENT
  Sex: Male
  Weight: 72.2 kg

DRUGS (6)
  1. VEDOLIZUMAB [Suspect]
     Active Substance: VEDOLIZUMAB
     Indication: COLITIS ULCERATIVE
     Dosage: UNK
     Route: 065
     Dates: start: 20190308
  2. ADALIMUMAB [Concomitant]
     Active Substance: ADALIMUMAB
     Dosage: 40 MILLIGRAM, Q2WEEKS
  3. FLUVOXAMINE [Concomitant]
     Active Substance: FLUVOXAMINE
     Dosage: 100 MILLIGRAM
  4. METHOTREXATE. [Concomitant]
     Active Substance: METHOTREXATE
     Dosage: 20 MILLIGRAM, 1/WEEK
     Route: 048
     Dates: start: 20180905
  5. CATAPRES [Concomitant]
     Active Substance: CLONIDINE HYDROCHLORIDE
     Dosage: 100 MICROGRAM, BID
  6. OMEPRAZOLE. [Concomitant]
     Active Substance: OMEPRAZOLE
     Dosage: 20 MILLIGRAM, BID

REACTIONS (3)
  - Off label use [Unknown]
  - Steroid dependence [Unknown]
  - Colitis ulcerative [Unknown]
